FAERS Safety Report 6376415-1 (Version None)
Quarter: 2009Q3

REPORT INFORMATION
  Report Type: 
  Country: None (occurrence: None)
  Receive Date: 20090925
  Receipt Date: 20090921
  Transmission Date: 20100115
  Serious: No
  Sender: FDA-Public Use
  Company Number: FR-JNJFOC-20090905683

PATIENT
  Age: 40 Year
  Sex: Female

DRUGS (3)
  1. DURAGESIC-100 [Suspect]
     Route: 062
  2. DURAGESIC-100 [Suspect]
     Indication: DRUG USE FOR UNKNOWN INDICATION
     Route: 062
  3. ACTISKENAN [Concomitant]

REACTIONS (2)
  - APPLICATION SITE REACTION [None]
  - INCORRECT DRUG ADMINISTRATION DURATION [None]
